FAERS Safety Report 10703194 (Version 1)
Quarter: 2015Q1

REPORT INFORMATION
  Report Type: Spontaneous
  Country: US (occurrence: US)
  Receive Date: 20150112
  Receipt Date: 20150112
  Transmission Date: 20150721
  Serious: Yes (Other)
  Sender: FDA-Public Use
  Company Number: US-BEH-2014047650

PATIENT
  Sex: Male

DRUGS (1)
  1. HIZENTRA [Suspect]
     Active Substance: HUMAN IMMUNOGLOBULIN G

REACTIONS (9)
  - Prostatomegaly [Unknown]
  - Throat tightness [Unknown]
  - Loss of consciousness [Unknown]
  - Dyspnoea [Unknown]
  - Chest discomfort [Unknown]
  - Gastric disorder [Unknown]
  - Diarrhoea [Unknown]
  - Urinary tract disorder [Unknown]
  - Road traffic accident [Unknown]
